FAERS Safety Report 23170395 (Version 2)
Quarter: 2023Q4

REPORT INFORMATION
  Report Type: Spontaneous
  Country: US (occurrence: US)
  Receive Date: 20231110
  Receipt Date: 20231130
  Transmission Date: 20240110
  Serious: Yes (Other)
  Sender: FDA-Public Use
  Company Number: US-Indoco-000476

PATIENT
  Age: 3 Week
  Sex: Female

DRUGS (4)
  1. LACOSAMIDE [Suspect]
     Active Substance: LACOSAMIDE
     Indication: Neonatal seizure
     Dosage: 2 MG/KG/DOSE
  2. PHENOBARBITAL [Concomitant]
     Active Substance: PHENOBARBITAL
     Indication: Neonatal seizure
  3. LEVETIRACETAM [Concomitant]
     Active Substance: LEVETIRACETAM
     Indication: Neonatal seizure
  4. PHENYTOIN [Concomitant]
     Active Substance: PHENYTOIN
     Indication: Neonatal seizure

REACTIONS (3)
  - Cardiac arrest neonatal [Recovered/Resolved]
  - Atrioventricular block second degree [Recovered/Resolved]
  - Off label use [Unknown]
